FAERS Safety Report 4692207-3 (Version None)
Quarter: 2005Q2

REPORT INFORMATION
  Report Type: 
  Country: None (occurrence: None)
  Receive Date: 20050614
  Receipt Date: 20050602
  Transmission Date: 20051028
  Serious: Yes (Other)
  Sender: FDA-Public Use
  Company Number: 2005060428

PATIENT
  Age: 36 Year
  Sex: Male

DRUGS (8)
  1. VFEND [Suspect]
     Indication: BRONCHOPULMONARY ASPERGILLOSIS
     Dosage: 400 MG (2 IN 1 D) ORAL
     Route: 048
     Dates: start: 20050128, end: 20050401
  2. AXEPIM (CEFEPIME HYDROCHLORIDE) [Concomitant]
  3. VANCOMYCIN [Concomitant]
  4. AMIKLIN (AMIKACIN) [Concomitant]
  5. TIENAM (CILASTATIN, IMIPENEM) [Concomitant]
  6. CIPROFLOXACIN HCL [Concomitant]
  7. CANCIDAS [Concomitant]
  8. CYTARABINE [Concomitant]

REACTIONS (6)
  - FEBRILE BONE MARROW APLASIA [None]
  - HYPERTHERMIA [None]
  - KLEBSIELLA INFECTION [None]
  - LUNG DISORDER [None]
  - MUCORMYCOSIS [None]
  - NEUTROPENIA [None]
